FAERS Safety Report 9726406 (Version 1)
Quarter: 2013Q4

REPORT INFORMATION
  Report Type: Spontaneous
  Country: US (occurrence: None)
  Receive Date: 20131202
  Receipt Date: 20131202
  Transmission Date: 20140711
  Serious: Yes (Hospitalization)
  Sender: FDA-Public Use
  Company Number: None

PATIENT
  Age: 79 Year
  Sex: Female
  Weight: 90.7 kg

DRUGS (17)
  1. ELIQUIS [Suspect]
     Indication: ATRIAL FIBRILLATION
     Dosage: 1 PILL
     Route: 048
     Dates: start: 20131111, end: 20131124
  2. COREG [Concomitant]
  3. FLEXERIL [Concomitant]
  4. FENTANYL [Concomitant]
  5. FERROUS SULFATE [Concomitant]
  6. NEURONTIN [Concomitant]
  7. HYDRALAZINE [Concomitant]
  8. HUMULIN 70/30 [Concomitant]
  9. PROCARDIA XL [Concomitant]
  10. PROTONIX [Concomitant]
  11. ULTRACET [Concomitant]
  12. DIOVAN [Concomitant]
  13. VITAMIN E [Concomitant]
  14. ASPIRIN [Concomitant]
  15. ELAVIL [Concomitant]
  16. LIPITOR [Concomitant]
  17. OSCAL D [Concomitant]

REACTIONS (4)
  - Pulmonary alveolar haemorrhage [None]
  - Hypoglycaemia [None]
  - Anaemia [None]
  - Respiratory failure [None]
